FAERS Safety Report 5731995-1 (Version None)
Quarter: 2008Q2

REPORT INFORMATION
  Report Type: 
  Country: None (occurrence: None)
  Receive Date: 20080508
  Receipt Date: 20080501
  Transmission Date: 20081010
  Serious: Yes (Hospitalization)
  Sender: FDA-Public Use
  Company Number: AU-JNJFOC-20080500442

PATIENT
  Sex: Female

DRUGS (7)
  1. RISPERDAL CONSTA [Suspect]
     Indication: DELUSION
  2. THYROXIN [Concomitant]
  3. SIMVASTATIN [Concomitant]
  4. COLOXYL [Concomitant]
  5. SENNA [Concomitant]
  6. IRBESARTAN [Concomitant]
  7. METOPROLOL TARTRATE [Concomitant]

REACTIONS (3)
  - ATRIOVENTRICULAR BLOCK [None]
  - DELUSION [None]
  - THERAPEUTIC RESPONSE DECREASED [None]
